FAERS Safety Report 25636506 (Version 1)
Quarter: 2025Q3

REPORT INFORMATION
  Report Type: Report from Study
  Country: US (occurrence: US)
  Receive Date: 20250804
  Receipt Date: 20250804
  Transmission Date: 20251021
  Serious: Yes (Hospitalization)
  Sender: TAKEDA
  Company Number: US-TAKEDA-2025TUS067814

PATIENT
  Age: 8 Year
  Sex: Male

DRUGS (6)
  1. TEDUGLUTIDE [Suspect]
     Active Substance: TEDUGLUTIDE
     Indication: Short-bowel syndrome
     Dosage: 0.8 MILLIGRAM, QD
     Dates: start: 20211022
  2. TEDUGLUTIDE [Suspect]
     Active Substance: TEDUGLUTIDE
  3. TEDUGLUTIDE [Suspect]
     Active Substance: TEDUGLUTIDE
  4. TEDUGLUTIDE [Suspect]
     Active Substance: TEDUGLUTIDE
  5. VITAMIN A [Concomitant]
     Active Substance: VITAMIN A
     Indication: Vitamin A decreased
     Dosage: 20000 INTERNATIONAL UNIT, QD
     Dates: start: 20241122
  6. VITAMIN E [Concomitant]
     Active Substance: .ALPHA.-TOCOPHEROL
     Indication: Vitamin E decreased
     Dosage: 400 INTERNATIONAL UNIT, QD
     Dates: start: 20241122

REACTIONS (1)
  - Gastrointestinal microorganism overgrowth [Recovered/Resolved]

NARRATIVE: CASE EVENT DATE: 20250723
